FAERS Safety Report 6713653-X (Version None)
Quarter: 2010Q2

REPORT INFORMATION
  Report Type: 
  Country: None (occurrence: None)
  Receive Date: 20100506
  Receipt Date: 20100428
  Transmission Date: 20101027
  Serious: Yes (Hospitalization)
  Sender: FDA-Public Use
  Company Number: B0650567A

PATIENT
  Sex: Female

DRUGS (3)
  1. LAMICTAL [Suspect]
     Indication: EPILEPSY
     Dosage: 200MG PER DAY
     Route: 048
     Dates: start: 19960101
  2. WARFARIN [Concomitant]
     Indication: DEEP VEIN THROMBOSIS
     Route: 065
  3. NIFEDIPINE [Concomitant]
     Route: 065

REACTIONS (3)
  - HEADACHE [None]
  - NORMAL TENSION GLAUCOMA [None]
  - OPTIC NERVE CUPPING [None]
